FAERS Safety Report 5951951-8 (Version None)
Quarter: 2008Q4

REPORT INFORMATION
  Report Type: 
  Country: None (occurrence: None)
  Receive Date: 20081113
  Receipt Date: 20070926
  Transmission Date: 20090506
  Serious: Yes (Hospitalization)
  Sender: FDA-Public Use
  Company Number: A0684378A

PATIENT
  Age: 69 Year
  Sex: Female

DRUGS (9)
  1. COREG [Suspect]
     Indication: HYPERTENSION
     Dosage: 6.25MG TWICE PER DAY
     Route: 048
     Dates: start: 20030101, end: 20070912
  2. DIOVAN [Suspect]
     Indication: DRUG USE FOR UNKNOWN INDICATION
     Route: 065
  3. ATIVAN [Concomitant]
  4. PLAVIX [Concomitant]
  5. ASPIRIN [Concomitant]
  6. DEMADEX [Concomitant]
  7. POTASSIUM CHLORIDE [Concomitant]
  8. COUMADIN [Concomitant]
  9. ZYRTEC [Concomitant]

REACTIONS (1)
  - HEART RATE INCREASED [None]
